FAERS Safety Report 5342371-8 (Version None)
Quarter: 2007Q2

REPORT INFORMATION
  Report Type: 
  Country: None (occurrence: None)
  Receive Date: 20070601
  Receipt Date: 20070525
  Transmission Date: 20071010
  Serious: Yes (Hospitalization)
  Sender: FDA-Public Use
  Company Number: FR-GENENTECH-242030

PATIENT
  Age: 64 Year
  Sex: Male

DRUGS (12)
  1. MABTHERA [Suspect]
     Indication: NON-HODGKIN'S LYMPHOMA
     Dosage: 800 MG, UNK
     Route: 042
     Dates: start: 20070206
  2. ADRIAMYCIN PFS [Suspect]
     Indication: NON-HODGKIN'S LYMPHOMA
     Dosage: 100 MG, UNK
     Route: 042
     Dates: start: 20070206
  3. ONCOVIN [Suspect]
     Indication: NON-HODGKIN'S LYMPHOMA
     Dosage: 2 MG, UNK
     Route: 042
     Dates: start: 20070206
  4. OGAST [Concomitant]
     Indication: DRUG USE FOR UNKNOWN INDICATION
     Dosage: 30 MG, QD
  5. MOTILIUM [Concomitant]
     Indication: DRUG USE FOR UNKNOWN INDICATION
  6. FERO-GRAD (FRANCE) [Concomitant]
     Indication: DRUG USE FOR UNKNOWN INDICATION
  7. FORLAX [Concomitant]
     Indication: DRUG USE FOR UNKNOWN INDICATION
  8. CYCLOPHOSPHAMIDE [Concomitant]
     Indication: NON-HODGKIN'S LYMPHOMA
     Route: 042
  9. DOXORUBICIN HCL [Concomitant]
     Indication: NON-HODGKIN'S LYMPHOMA
     Route: 042
  10. VINCRISTINE [Concomitant]
     Indication: NON-HODGKIN'S LYMPHOMA
     Route: 042
  11. PREDNISONE TAB [Concomitant]
     Indication: NON-HODGKIN'S LYMPHOMA
     Route: 042
  12. METHOTREXATE SODIUM [Concomitant]
     Indication: NON-HODGKIN'S LYMPHOMA
     Route: 037

REACTIONS (1)
  - DEEP VEIN THROMBOSIS [None]
